FAERS Safety Report 9546148 (Version 1)
Quarter: 2013Q3

REPORT INFORMATION
  Report Type: Spontaneous
  Country: US (occurrence: US)
  Receive Date: 20130923
  Receipt Date: 20130923
  Transmission Date: 20140515
  Serious: No
  Sender: FDA-Public Use
  Company Number: US-GLAXOSMITHKLINE-A1020592A

PATIENT
  Age: 52 Year
  Sex: Female

DRUGS (1)
  1. ABREVA [Suspect]
     Indication: PRODUCT USED FOR UNKNOWN INDICATION
     Dates: start: 20130416, end: 20130417

REACTIONS (2)
  - Application site swelling [Recovered/Resolved]
  - Hypersensitivity [Recovered/Resolved]
